FAERS Safety Report 9756363 (Version 1)
Quarter: 2013Q4

REPORT INFORMATION
  Report Type: Spontaneous
  Country: US (occurrence: US)
  Receive Date: 20131213
  Receipt Date: 20131213
  Transmission Date: 20140711
  Serious: No
  Sender: FDA-Public Use
  Company Number: US-GLAXOSMITHKLINE-A1039284A

PATIENT
  Age: 70 Year
  Sex: Male

DRUGS (4)
  1. NICODERM CQ CLEAR 14MG [Suspect]
     Indication: EX-TOBACCO USER
  2. NICODERM CQ CLEAR 7MG [Suspect]
     Indication: EX-TOBACCO USER
  3. NICODERM CQ 21MG [Suspect]
     Indication: EX-TOBACCO USER
  4. NICODERM CQ [Suspect]
     Indication: EX-TOBACCO USER

REACTIONS (3)
  - Application site irritation [Recovered/Resolved]
  - Application site scab [Recovered/Resolved]
  - Application site reaction [Recovered/Resolved]
